FAERS Safety Report 10061108 (Version 1)
Quarter: 2014Q2

REPORT INFORMATION
  Report Type: Spontaneous
  Country: US (occurrence: US)
  Receive Date: 20140406
  Receipt Date: 20140406
  Transmission Date: 20141212
  Serious: No
  Sender: FDA-Public Use
  Company Number: US-TEVA-472233USA

PATIENT
  Sex: Female

DRUGS (3)
  1. PROAIR HFA [Suspect]
     Indication: WHEEZING
     Route: 055
     Dates: start: 20140326
  2. PROAIR HFA [Suspect]
     Indication: RESPIRATORY DISORDER
  3. BRONKAID [Concomitant]
     Indication: WHEEZING

REACTIONS (2)
  - Drug ineffective [Not Recovered/Not Resolved]
  - Wrong technique in drug usage process [Recovered/Resolved]
